FAERS Safety Report 20938758 (Version 3)
Quarter: 2022Q4

REPORT INFORMATION
  Report Type: Spontaneous
  Country: US (occurrence: US)
  Receive Date: 20220609
  Receipt Date: 20221031
  Transmission Date: 20230113
  Serious: No
  Sender: FDA-Public Use
  Company Number: US-PFIZER INC-202200229612

PATIENT
  Age: 80 Year
  Sex: Female
  Weight: 60.42 kg

DRUGS (2)
  1. TOVIAZ [Suspect]
     Active Substance: FESOTERODINE FUMARATE
     Indication: Hypertonic bladder
     Dosage: UNK
  2. TOVIAZ [Suspect]
     Active Substance: FESOTERODINE FUMARATE
     Dosage: 8 MG, 1X/DAY
     Route: 048

REACTIONS (3)
  - Product dispensing error [Unknown]
  - Dry mouth [Unknown]
  - Confusional state [Unknown]

NARRATIVE: CASE EVENT DATE: 20220823
